FAERS Safety Report 6713259-2 (Version None)
Quarter: 2010Q2

REPORT INFORMATION
  Report Type: 
  Country: None (occurrence: None)
  Receive Date: 20100506
  Receipt Date: 20100504
  Transmission Date: 20101027
  Serious: Yes (Death, Other)
  Sender: FDA-Public Use
  Company Number: PHHY2010GB01793

PATIENT
  Sex: Male

DRUGS (2)
  1. CLOZARIL [Suspect]
     Indication: SCHIZOPHRENIA
     Dosage: 600 MG DAILY
     Dates: start: 19950209
  2. EPILIM CHRONO [Suspect]
     Indication: EPILEPSY
     Dosage: 600 MG, UNK
     Route: 048
     Dates: end: 19960101

REACTIONS (2)
  - H1N1 INFLUENZA [None]
  - UNRESPONSIVE TO STIMULI [None]
